FAERS Safety Report 16234995 (Version 4)
Quarter: 2019Q3

REPORT INFORMATION
  Report Type: Report from Study
  Country: US (occurrence: US)
  Receive Date: 20190424
  Receipt Date: 20190820
  Transmission Date: 20191004
  Serious: Yes (Hospitalization, Disabling)
  Sender: FDA-Public Use
  Company Number: US-ACTELION-A-US2019-189485

PATIENT
  Age: 63 Year
  Sex: Female
  Weight: 106.58 kg

DRUGS (25)
  1. ATORVASTATIN [Concomitant]
     Active Substance: ATORVASTATIN
     Dosage: 20 MG
  2. ADEMPAS [Concomitant]
     Active Substance: RIOCIGUAT
     Dosage: 1.5 UNK
  3. ADEMPAS [Concomitant]
     Active Substance: RIOCIGUAT
     Dosage: 2 MG, TID
  4. OPSUMIT [Suspect]
     Active Substance: MACITENTAN
     Indication: PULMONARY ARTERIAL HYPERTENSION
     Dosage: 10 MG, QD
     Route: 048
     Dates: start: 20190201, end: 20190719
  5. ASPIRIN. [Concomitant]
     Active Substance: ASPIRIN
     Dosage: 81 MG, QD
  6. LORATADINE. [Concomitant]
     Active Substance: LORATADINE
  7. COLCHICINE. [Concomitant]
     Active Substance: COLCHICINE
     Dosage: 0.6 MG, QD
  8. POTASSIUM CHLORIDE. [Concomitant]
     Active Substance: POTASSIUM CHLORIDE
     Dosage: 20 MG, QAM
  9. UMECLIDINIUM BROMIDE [Concomitant]
     Active Substance: UMECLIDINIUM BROMIDE
  10. ASA [Concomitant]
     Active Substance: ASPIRIN
     Dosage: 81 MG, QD
  11. HYDRALAZINE [Concomitant]
     Active Substance: HYDRALAZINE HYDROCHLORIDE
     Dosage: 50 MG, BID
  12. BUMETANIDE. [Concomitant]
     Active Substance: BUMETANIDE
  13. XANAX [Concomitant]
     Active Substance: ALPRAZOLAM
  14. K-DUR [Concomitant]
     Active Substance: POTASSIUM CHLORIDE
  15. LEVOXYL [Concomitant]
     Active Substance: LEVOTHYROXINE SODIUM
     Dosage: 125 MCG, QD
  16. LIPITOR [Concomitant]
     Active Substance: ATORVASTATIN CALCIUM
     Dosage: 20 MG, QPM
  17. SEREVENT DISKUS [Concomitant]
     Active Substance: SALMETEROL XINAFOATE
     Dosage: 50 MCG, BID
  18. SODIUM CHLORIDE. [Concomitant]
     Active Substance: SODIUM CHLORIDE
  19. SALMETEROL [Concomitant]
     Active Substance: SALMETEROL
  20. ALLOPURINOL. [Concomitant]
     Active Substance: ALLOPURINOL
     Dosage: 100 MG, BID
  21. LOPRESSOR [Concomitant]
     Active Substance: METOPROLOL TARTRATE
     Dosage: 25 MG, BID
  22. INCRUSE ELLIPTA [Concomitant]
     Active Substance: UMECLIDINIUM BROMIDE
     Dosage: UNK, QD
  23. FLOVENT [Concomitant]
     Active Substance: FLUTICASONE PROPIONATE
     Dosage: 250 MCG, BID
  24. IPRATROPIUM [Concomitant]
     Active Substance: IPRATROPIUM
     Dosage: UNK, QID
  25. FLUTICASONE PROPIONATE. [Concomitant]
     Active Substance: FLUTICASONE PROPIONATE

REACTIONS (37)
  - Oxygen saturation decreased [Recovering/Resolving]
  - Tricuspid valve incompetence [Unknown]
  - Hypertension [Unknown]
  - Chronic obstructive pulmonary disease [Recovering/Resolving]
  - Pulmonary hypertension [Unknown]
  - Pneumonia [Recovering/Resolving]
  - Hypoxia [Recovering/Resolving]
  - Pulmonary oedema [Recovering/Resolving]
  - Weight increased [Not Recovered/Not Resolved]
  - Atelectasis [Unknown]
  - Chronic kidney disease [Unknown]
  - Blood urea nitrogen/creatinine ratio increased [Unknown]
  - Respiratory symptom [Recovering/Resolving]
  - Atrial fibrillation [Unknown]
  - Dyspnoea [Unknown]
  - Chronic left ventricular failure [Recovering/Resolving]
  - PCO2 increased [Unknown]
  - Obesity [Unknown]
  - Pulmonary arterial hypertension [Recovering/Resolving]
  - Oedema peripheral [Unknown]
  - Paratracheal lymphadenopathy [Unknown]
  - Anxiety [Unknown]
  - PO2 decreased [Unknown]
  - Hypothyroidism [Recovering/Resolving]
  - Sleep apnoea syndrome [Unknown]
  - Respiratory disorder [Recovering/Resolving]
  - Acute respiratory failure [Recovering/Resolving]
  - Orthopnoea [Recovering/Resolving]
  - Pleural effusion [Unknown]
  - Polycythaemia vera [Unknown]
  - Blood urea increased [Unknown]
  - Respiratory acidosis [Recovering/Resolving]
  - Cardiac failure congestive [Recovering/Resolving]
  - Brain natriuretic peptide increased [Recovering/Resolving]
  - Hypercapnia [Recovering/Resolving]
  - Blood glucose increased [Unknown]
  - Hyperlipidaemia [Unknown]

NARRATIVE: CASE EVENT DATE: 20190407
